FAERS Safety Report 9675404 (Version 1)
Quarter: 2013Q4

REPORT INFORMATION
  Report Type: Spontaneous
  Country: US (occurrence: US)
  Receive Date: 20131107
  Receipt Date: 20131107
  Transmission Date: 20140711
  Serious: Yes (Hospitalization)
  Sender: FDA-Public Use
  Company Number: US-ROCHE-1295059

PATIENT
  Sex: Male

DRUGS (1)
  1. TORADOL [Suspect]
     Indication: BACK PAIN
     Route: 030
     Dates: start: 20121026

REACTIONS (4)
  - Necrotising fasciitis [Unknown]
  - Septic shock [Unknown]
  - Ischaemia [Unknown]
  - Gangrene [Unknown]
